FAERS Safety Report 12765873 (Version 2)
Quarter: 2016Q4

REPORT INFORMATION
  Report Type: Spontaneous
  Country: US (occurrence: US)
  Receive Date: 20160921
  Receipt Date: 20161104
  Transmission Date: 20170207
  Serious: No
  Sender: FDA-Public Use
  Company Number: US-JNJFOC-20160910393

PATIENT
  Sex: Female
  Weight: 81.65 kg

DRUGS (1)
  1. XARELTO [Suspect]
     Active Substance: RIVAROXABAN
     Indication: THROMBOSIS
     Route: 048
     Dates: start: 201312

REACTIONS (3)
  - Product packaging quantity issue [Unknown]
  - Stress [Not Recovered/Not Resolved]
  - Drug dose omission [Unknown]
